FAERS Safety Report 10681657 (Version 1)
Quarter: 2014Q4

REPORT INFORMATION
  Report Type: Spontaneous
  Country: None (occurrence: None)
  Receive Date: 20141224
  Receipt Date: 20141224
  Transmission Date: 20150529
  Serious: Yes (Hospitalization)
  Sender: FDA-Public Use
  Company Number: 2014120067

PATIENT
  Age: 87 Year
  Sex: Male

DRUGS (4)
  1. TORASEMIDE (TORASEMIDE) [Suspect]
     Active Substance: TORSEMIDE
     Indication: HYPERTENSION
     Route: 048
  2. XARELTO [Suspect]
     Active Substance: RIVAROXABAN
     Indication: ATRIAL FIBRILLATION
     Route: 048
  3. BISOPROLOL (BISOPROLOL) [Suspect]
     Active Substance: BISOPROLOL
     Indication: ATRIAL FIBRILLATION
     Route: 048
  4. PANTOZOL [Concomitant]
     Active Substance: PANTOPRAZOLE SODIUM

REACTIONS (1)
  - Haemorrhagic anaemia [None]

NARRATIVE: CASE EVENT DATE: 20141203
